FAERS Safety Report 21004024 (Version 1)
Quarter: 2022Q2

REPORT INFORMATION
  Report Type: Spontaneous
  Country: CN (occurrence: CN)
  Receive Date: 20220624
  Receipt Date: 20220624
  Transmission Date: 20220721
  Serious: Yes (Other)
  Sender: FDA-Public Use
  Company Number: None

PATIENT
  Age: 59 Year
  Sex: Female
  Weight: 61 kg

DRUGS (6)
  1. CYCLOPHOSPHAMIDE [Suspect]
     Active Substance: CYCLOPHOSPHAMIDE
     Indication: Breast cancer female
     Dosage: 0.95 G, QD, CYCLOPHOSPHAMIDE FOR INJECTION (0.95G) + NORMAL SALINE (500ML)
     Route: 041
     Dates: start: 20220523, end: 20220523
  2. SODIUM CHLORIDE [Suspect]
     Active Substance: SODIUM CHLORIDE
     Indication: Medication dilution
     Dosage: 500 ML, QD,CYCLOPHOSPHAMIDE FOR INJECTION 0.95G+NORMAL SALINE 500ML
     Route: 041
     Dates: start: 20220523, end: 20220523
  3. DEXTROSE MONOHYDRATE [Suspect]
     Active Substance: DEXTROSE MONOHYDRATE
     Indication: Medication dilution
     Dosage: 100 ML, QD,PIRARUBICIN HYDROCHLORIDE FOR INJECTION (40MG) + (100ML) 5% GLUCOSE, DRIP RATE OF 20 DROP
     Route: 041
     Dates: start: 20220523, end: 20220523
  4. DEXTROSE MONOHYDRATE [Suspect]
     Active Substance: DEXTROSE MONOHYDRATE
     Dosage: 100 ML, QD,PIRARUBICIN HYDROCHLORIDE FOR INJECTION (40MG) + (100ML) 5% GLUCOSE, DRIP RATE OF 20 DROP
     Route: 041
     Dates: start: 20220524, end: 20220524
  5. PIRARUBICIN HYDROCHLORIDE [Suspect]
     Active Substance: PIRARUBICIN HYDROCHLORIDE
     Indication: Breast cancer female
     Dosage: 40 MG ONCE DAILY, PIRARUBICIN HYDROCHLORIDE FOR INJECTION (40MG) + (100ML) 5% GLUCOSE, DRIP RATE OF
     Route: 041
     Dates: start: 20220523, end: 20220523
  6. PIRARUBICIN HYDROCHLORIDE [Suspect]
     Active Substance: PIRARUBICIN HYDROCHLORIDE
     Dosage: 40 MG ONCE DAILY, DRIP RATE OF 20 DROPS/MIN, PIRARUBICIN HYDROCHLORIDE FOR INJECTION (40MG) + (100ML
     Route: 041
     Dates: start: 20220524, end: 20220524

REACTIONS (3)
  - Condition aggravated [Recovering/Resolving]
  - Myelosuppression [Recovering/Resolving]
  - Hepatic function abnormal [Recovering/Resolving]

NARRATIVE: CASE EVENT DATE: 20220526
